FAERS Safety Report 6637463 (Version 9)
Quarter: 2014Q1

REPORT INFORMATION
  Report Type: Report from Study
  Country: US (occurrence: US)
  Receive Date: 20080509
  Receipt Date: 20140127
  Transmission Date: 20141002
  Serious: Yes (Other)
  Sender: FDA-Public Use
  Company Number: US-PFIZER INC-2008038436

PATIENT
  Age: 46 Year
  Sex: Female
  Weight: 83 kg

DRUGS (10)
  1. CHANTIX TABLETS [Suspect]
     Indication: SMOKING CESSATION THERAPY
     Dosage: 0.5 MG, 1X/DAY
     Route: 048
     Dates: start: 200711, end: 200711
  2. CHANTIX TABLETS [Suspect]
     Dosage: 0.5 MG, 2X/DAY
     Route: 048
     Dates: start: 200711, end: 200711
  3. CHANTIX TABLETS [Suspect]
     Dosage: 1 MG, 2X/DAY
     Route: 048
     Dates: start: 200711, end: 200711
  4. CHANTIX TABLETS [Suspect]
     Dosage: 1 MG, 1X/DAY
     Route: 048
     Dates: start: 200803, end: 200804
  5. CHANTIX TABLETS [Suspect]
     Dosage: 1 MG, 2X/DAY
     Route: 048
     Dates: start: 2008, end: 200806
  6. CHANTIX TABLETS [Suspect]
     Dosage: 0.5 MG, 1X/DAY
     Route: 048
     Dates: start: 200808, end: 2008
  7. CHANTIX TABLETS [Suspect]
     Dosage: 0.5 MG, 1X/DAY
     Route: 048
     Dates: start: 201009
  8. ELAVIL [Concomitant]
     Dosage: UNK
  9. AVONEX [Concomitant]
     Indication: MULTIPLE SCLEROSIS
     Dosage: UNK
  10. KLONOPIN [Concomitant]
     Indication: STRESS
     Dosage: 1 MG, 2X/DAY
     Route: 048

REACTIONS (16)
  - Loss of consciousness [Recovered/Resolved]
  - Blood pressure increased [Recovered/Resolved]
  - Presyncope [Recovered/Resolved]
  - Weight increased [Recovering/Resolving]
  - Diabetes mellitus [Not Recovered/Not Resolved]
  - Incorrect dose administered [Recovered/Resolved]
  - Impaired driving ability [Recovered/Resolved]
  - Balance disorder [Recovered/Resolved]
  - Gait disturbance [Recovered/Resolved]
  - Nightmare [Recovered/Resolved]
  - Emotional disorder [Unknown]
  - Drug ineffective [Unknown]
  - Weight decreased [Unknown]
  - Tooth disorder [Unknown]
  - Depression [Recovering/Resolving]
  - Feeling abnormal [Unknown]
